FAERS Safety Report 17413955 (Version 3)
Quarter: 2020Q2

REPORT INFORMATION
  Report Type: Spontaneous
  Country: US (occurrence: US)
  Receive Date: 20200213
  Receipt Date: 20200526
  Transmission Date: 20200713
  Serious: Yes (Other)
  Sender: FDA-Public Use
  Company Number: US-GILEAD-2020-0450648

PATIENT
  Age: 45 Year
  Sex: Male
  Weight: 100.77 kg

DRUGS (26)
  1. ZESTORETIC [Concomitant]
     Active Substance: HYDROCHLOROTHIAZIDE\LISINOPRIL
  2. EPIVIR [Concomitant]
     Active Substance: LAMIVUDINE
  3. DOLUTEGRAVIR [Concomitant]
     Active Substance: DOLUTEGRAVIR
  4. LAMIVUDINE. [Concomitant]
     Active Substance: LAMIVUDINE
  5. CROMOLYN SODIUM. [Concomitant]
     Active Substance: CROMOLYN SODIUM
  6. VIREAD [Suspect]
     Active Substance: TENOFOVIR DISOPROXIL FUMARATE
     Indication: HEPATITIS B
     Dosage: 300 MG, QOD
     Route: 048
     Dates: start: 2014, end: 20170605
  7. TRUVADA [Suspect]
     Active Substance: EMTRICITABINE\TENOFOVIR DISOPROXIL FUMARATE
     Indication: HIV INFECTION
     Dosage: 1 DOSAGE FORM, QD
     Route: 048
     Dates: start: 20110402, end: 201409
  8. TRUVADA [Suspect]
     Active Substance: EMTRICITABINE\TENOFOVIR DISOPROXIL FUMARATE
     Indication: HEPATITIS B
     Dosage: 1 DOSAGE FORM, Q3DAYS
     Route: 048
     Dates: start: 2014, end: 20150407
  9. LISINOPRIL HCTZ [Concomitant]
     Active Substance: HYDROCHLOROTHIAZIDE\LISINOPRIL
  10. LEXIVA [Concomitant]
     Active Substance: FOSAMPRENAVIR CALCIUM
  11. PRILOSEC [Concomitant]
     Active Substance: OMEPRAZOLE MAGNESIUM
  12. PERIDEX [CHLORHEXIDINE GLUCONATE] [Concomitant]
  13. DESCOVY [Concomitant]
     Active Substance: EMTRICITABINE\TENOFOVIR ALAFENAMIDE FUMARATE
  14. PREDNISOLONE. [Concomitant]
     Active Substance: PREDNISOLONE
  15. OPTICROM [Concomitant]
     Active Substance: CROMOLYN SODIUM
  16. ACULAR [Concomitant]
     Active Substance: KETOROLAC TROMETHAMINE
  17. CEFADROXIL. [Concomitant]
     Active Substance: CEFADROXIL
  18. AZITHROMYCIN ANHYDROUS. [Concomitant]
     Active Substance: AZITHROMYCIN ANHYDROUS
  19. BENZONATATE. [Concomitant]
     Active Substance: BENZONATATE
  20. VIREAD [Suspect]
     Active Substance: TENOFOVIR DISOPROXIL FUMARATE
     Indication: HIV INFECTION
     Dosage: 300 MG, QD
     Route: 048
     Dates: start: 20140507, end: 2014
  21. ZIAGEN [Concomitant]
     Active Substance: ABACAVIR SULFATE
  22. LISINOPRIL. [Concomitant]
     Active Substance: LISINOPRIL
  23. BARACLUDE [Concomitant]
     Active Substance: ENTECAVIR
  24. NORVIR [Concomitant]
     Active Substance: RITONAVIR
  25. TIVICAY [Concomitant]
     Active Substance: DOLUTEGRAVIR SODIUM
  26. VITAMIN C [Concomitant]
     Active Substance: ASCORBIC ACID

REACTIONS (11)
  - Tooth loss [Unknown]
  - Polyarteritis nodosa [Unknown]
  - Anxiety [Unknown]
  - Chronic kidney disease [Unknown]
  - Renal failure [Unknown]
  - Anhedonia [Unknown]
  - Pain [Unknown]
  - Economic problem [Unknown]
  - Bone loss [Not Recovered/Not Resolved]
  - Bone density decreased [Unknown]
  - Emotional distress [Unknown]

NARRATIVE: CASE EVENT DATE: 201410
